FAERS Safety Report 4785648-7 (Version None)
Quarter: 2005Q4

REPORT INFORMATION
  Report Type: 
  Country: None (occurrence: None)
  Receive Date: 20051003
  Receipt Date: 20050921
  Transmission Date: 20060501
  Serious: Yes (Other)
  Sender: FDA-Public Use
  Company Number: US-AMGEN-US151308

PATIENT
  Sex: Male
  Weight: 92 kg

DRUGS (5)
  1. DARBEPOETIN ALFA [Suspect]
     Indication: MYELODYSPLASTIC SYNDROME
     Route: 058
     Dates: start: 20050216
  2. FILGRASTIM [Concomitant]
  3. OCUVIT [Concomitant]
  4. GLUCOSAMINE [Concomitant]
  5. VITAMINS [Concomitant]

REACTIONS (2)
  - MACULOPATHY [None]
  - VISUAL ACUITY REDUCED [None]
